FAERS Safety Report 13169605 (Version 7)
Quarter: 2017Q3

REPORT INFORMATION
  Report Type: Report from Study
  Country: CA (occurrence: CA)
  Receive Date: 20170201
  Receipt Date: 20170721
  Transmission Date: 20171127
  Serious: Yes (Life-Threatening, Hospitalization, Other)
  Sender: FDA-Public Use
  Company Number: PHHY2017CA009435

PATIENT
  Age: 52 Year
  Sex: Female

DRUGS (10)
  1. CELEBREX [Concomitant]
     Active Substance: CELECOXIB
     Indication: PRODUCT USED FOR UNKNOWN INDICATION
     Dosage: 1 DF, UNK
     Route: 065
  2. FENTANYL. [Concomitant]
     Active Substance: FENTANYL
     Indication: PRODUCT USED FOR UNKNOWN INDICATION
     Dosage: 1 DF, UNK
     Route: 065
  3. REMICADE [Concomitant]
     Active Substance: INFLIXIMAB
     Indication: PRODUCT USED FOR UNKNOWN INDICATION
     Route: 065
  4. PROZAC [Concomitant]
     Active Substance: FLUOXETINE HYDROCHLORIDE
     Indication: PRODUCT USED FOR UNKNOWN INDICATION
     Route: 065
  5. IBUPROFEN. [Concomitant]
     Active Substance: IBUPROFEN
     Indication: PRODUCT USED FOR UNKNOWN INDICATION
     Dosage: 1 DF, UNK
     Route: 065
  6. ENBREL [Concomitant]
     Active Substance: ETANERCEPT
     Indication: PRODUCT USED FOR UNKNOWN INDICATION
     Dosage: UNK
     Route: 065
  7. NAPROXEN. [Concomitant]
     Active Substance: NAPROXEN
     Indication: PRODUCT USED FOR UNKNOWN INDICATION
     Dosage: 1 DF, UNK
     Route: 065
  8. WELLBUTRIN [Concomitant]
     Active Substance: BUPROPION HYDROCHLORIDE
     Indication: PRODUCT USED FOR UNKNOWN INDICATION
     Route: 065
  9. VOLTAREN [Suspect]
     Active Substance: DICLOFENAC SODIUM
     Indication: ANKYLOSING SPONDYLITIS
     Dosage: 1 DF, UNK
     Route: 065
  10. VIOXX [Concomitant]
     Active Substance: ROFECOXIB
     Indication: PRODUCT USED FOR UNKNOWN INDICATION
     Dosage: 1 DF, UNK
     Route: 065

REACTIONS (42)
  - Dyspnoea [Unknown]
  - Visual impairment [Unknown]
  - Depressed mood [Unknown]
  - Feeling abnormal [Unknown]
  - Gastric ulcer [Unknown]
  - Anaemia [Unknown]
  - Emotional disorder [Unknown]
  - Fatigue [Unknown]
  - Movement disorder [Unknown]
  - Anxiety [Unknown]
  - Memory impairment [Unknown]
  - Hepatic mass [Unknown]
  - Weight decreased [Unknown]
  - Malaise [Unknown]
  - Inflammation [Not Recovered/Not Resolved]
  - Chest discomfort [Unknown]
  - Optic neuritis [Unknown]
  - Infection [Unknown]
  - Pyrexia [Unknown]
  - Cardiac disorder [Unknown]
  - General physical health deterioration [Unknown]
  - Insomnia [Unknown]
  - Irritable bowel syndrome [Unknown]
  - Somnolence [Unknown]
  - Optic nerve disorder [Unknown]
  - Sleep apnoea syndrome [Unknown]
  - Middle insomnia [Unknown]
  - Gastric ulcer haemorrhage [Unknown]
  - Abdominal pain upper [Unknown]
  - Pharyngeal mass [Unknown]
  - Pain [Not Recovered/Not Resolved]
  - Pleural effusion [Unknown]
  - Agitation [Unknown]
  - Ankylosing spondylitis [Not Recovered/Not Resolved]
  - Crying [Unknown]
  - Throat tightness [Unknown]
  - Multiple sclerosis [Unknown]
  - Impulse-control disorder [Unknown]
  - Vomiting [Unknown]
  - Cardiomyopathy [Unknown]
  - Suicide attempt [Unknown]
  - Gastrooesophageal reflux disease [Unknown]

NARRATIVE: CASE EVENT DATE: 20170115
